FAERS Safety Report 16749249 (Version 2)
Quarter: 2019Q3

REPORT INFORMATION
  Report Type: Spontaneous
  Country: PL (occurrence: PL)
  Receive Date: 20190828
  Receipt Date: 20190923
  Transmission Date: 20191005
  Serious: Yes (Hospitalization, Other)
  Sender: FDA-Public Use
  Company Number: PL-JNJFOC-20190819401

PATIENT
  Age: 75 Year
  Sex: Female

DRUGS (13)
  1. CYCLOPHOSPHAMIDE. [Suspect]
     Active Substance: CYCLOPHOSPHAMIDE
     Indication: DIFFUSE LARGE B-CELL LYMPHOMA STAGE II
     Dosage: ONCE DAILY; CYCLICAL
     Route: 042
     Dates: start: 20170203
  2. LEVOTHYROXINE. [Concomitant]
     Active Substance: LEVOTHYROXINE
  3. RITUXIMAB. [Suspect]
     Active Substance: RITUXIMAB
     Indication: DIFFUSE LARGE B-CELL LYMPHOMA STAGE II
     Dosage: ONCE DAILY; CYCLICAL
     Route: 042
     Dates: start: 20170203
  4. VINCRISTINE [Suspect]
     Active Substance: VINCRISTINE
     Indication: DIFFUSE LARGE B-CELL LYMPHOMA STAGE II
     Dosage: ONCE DAILY; CYCLICAL
     Route: 042
     Dates: start: 20170203
  5. RAMIPRIL. [Concomitant]
     Active Substance: RAMIPRIL
  6. CARVEDILOL. [Concomitant]
     Active Substance: CARVEDILOL
  7. ACETYLSALICYLIC ACID [Concomitant]
     Active Substance: ASPIRIN
  8. NON PEGYLATED LIPOSOMAL DOXORUBICIN [Suspect]
     Active Substance: DOXORUBICIN
     Indication: DIFFUSE LARGE B-CELL LYMPHOMA STAGE II
     Dosage: 50 MG/M2 DAILY; AS A PART OF R-COMP REGIMEN
     Route: 042
     Dates: start: 20170203
  9. ATORVASTATIN [Concomitant]
     Active Substance: ATORVASTATIN
  10. PREDNISONE. [Suspect]
     Active Substance: PREDNISONE
     Indication: DIFFUSE LARGE B-CELL LYMPHOMA STAGE II
     Dosage: ON DAYS 1 TO 5; CYCLICAL
     Route: 065
     Dates: start: 20170203
  11. AMLODIPINE [Concomitant]
     Active Substance: AMLODIPINE BESYLATE
  12. METFORMIN [Concomitant]
     Active Substance: METFORMIN HYDROCHLORIDE
  13. CAELYX [Suspect]
     Active Substance: DOXORUBICIN HYDROCHLORIDE
     Indication: DIFFUSE LARGE B-CELL LYMPHOMA STAGE II
     Dosage: ONCE DAILY; CYCLICAL
     Route: 042
     Dates: start: 20170203

REACTIONS (6)
  - Off label use [Unknown]
  - Granulocyte count decreased [Recovered/Resolved]
  - Febrile neutropenia [Recovered/Resolved]
  - Product use in unapproved indication [Unknown]
  - Cytopenia [Recovered/Resolved]
  - Anaemia [Recovered/Resolved]

NARRATIVE: CASE EVENT DATE: 2017
